FAERS Safety Report 4979650-X (Version None)
Quarter: 2006Q1

REPORT INFORMATION
  Report Type: 
  Country: None (occurrence: None)
  Receive Date: 20060227
  Receipt Date: 20050504
  Transmission Date: 20060701
  Serious: Yes (Disabling)
  Sender: FDA-Public Use
  Company Number: DSA_26397_2005

PATIENT
  Sex: Male

DRUGS (3)
  1. VASOTEC [Suspect]
     Indication: CARDIAC DISORDER
     Dosage: 5 MG BID PO
     Route: 048
  2. VASOTEC [Suspect]
     Indication: CARDIAC DISORDER
     Dosage: 10 MG BID
  3. ALLOPURINOL [Suspect]
     Dosage: 750 MG Q DAY

REACTIONS (1)
  - DYSPNOEA EXACERBATED [None]
